FAERS Safety Report 7119069-9 (Version None)
Quarter: 2010Q4

REPORT INFORMATION
  Report Type: 
  Country: None (occurrence: None)
  Receive Date: 20101123
  Receipt Date: 20101115
  Transmission Date: 20110411
  Serious: Yes (Hospitalization)
  Sender: FDA-Public Use
  Company Number: B0661242A

PATIENT
  Age: 10 Year
  Sex: Female

DRUGS (2)
  1. VALACICLOVIR [Suspect]
     Indication: STOMATITIS
     Route: 048
  2. ACYCLOVIR [Suspect]
     Indication: ENCEPHALITIS HERPES
     Route: 048

REACTIONS (7)
  - ALTERED STATE OF CONSCIOUSNESS [None]
  - DRUG HYPERSENSITIVITY [None]
  - ENCEPHALITIS [None]
  - INCOHERENT [None]
  - PYREXIA [None]
  - RASH [None]
  - SPLENIC LESION [None]
